FAERS Safety Report 22625153 (Version 3)
Quarter: 2024Q3

REPORT INFORMATION
  Report Type: Spontaneous
  Country: US (occurrence: US)
  Receive Date: 20230621
  Receipt Date: 20240718
  Transmission Date: 20241017
  Serious: No
  Sender: Unknown Manufacturer
  Company Number: US-THERATECHNOLOGIES INC.-2023-THE-TES-000187

PATIENT

DRUGS (8)
  1. EGRIFTA SV [Suspect]
     Active Substance: TESAMORELIN ACETATE
     Indication: Lipodystrophy acquired
     Dosage: UNK, QD
     Route: 065
     Dates: start: 202304
  2. EGRIFTA SV [Suspect]
     Active Substance: TESAMORELIN ACETATE
     Dosage: 1.4 MG (0.35 ML), QD
     Route: 058
     Dates: start: 20230501, end: 20230512
  3. EGRIFTA SV [Suspect]
     Active Substance: TESAMORELIN ACETATE
     Dosage: UNK, QD
     Route: 065
     Dates: end: 202405
  4. EGRIFTA SV [Suspect]
     Active Substance: TESAMORELIN ACETATE
     Dosage: UNK, QD
     Route: 065
     Dates: start: 202406
  5. BIKTARVY [Concomitant]
     Active Substance: BICTEGRAVIR SODIUM\EMTRICITABINE\TENOFOVIR ALAFENAMIDE FUMARATE
     Indication: Product used for unknown indication
     Dosage: UNK
     Route: 065
  6. AMBIEN [Concomitant]
     Active Substance: ZOLPIDEM TARTRATE
     Indication: Product used for unknown indication
     Dosage: UNK
     Route: 065
  7. TESTOSTERONE [Concomitant]
     Active Substance: TESTOSTERONE
     Indication: Product used for unknown indication
     Dosage: UNK
     Route: 065
  8. VITAMIN B [Concomitant]
     Active Substance: VITAMIN B
     Indication: Neuropathy peripheral
     Dosage: UNK
     Route: 065

REACTIONS (6)
  - Burning sensation [Not Recovered/Not Resolved]
  - Muscle spasms [Recovered/Resolved]
  - Rash [Not Recovered/Not Resolved]
  - Muscle spasms [Not Recovered/Not Resolved]
  - Dehydration [Unknown]
  - Blood pressure increased [Unknown]

NARRATIVE: CASE EVENT DATE: 20230501
